FAERS Safety Report 26158084 (Version 1)
Quarter: 2025Q4

REPORT INFORMATION
  Report Type: Spontaneous
  Country: US (occurrence: None)
  Receive Date: 20251215
  Receipt Date: 20251215
  Transmission Date: 20260118
  Serious: No
  Sender: FDA-CTU
  Company Number: None

PATIENT
  Age: 78 Year
  Sex: Male
  Weight: 101 kg

DRUGS (1)
  1. ROSUVASTATIN CALCIUM [Suspect]
     Active Substance: ROSUVASTATIN CALCIUM
     Indication: Hyperlipidaemia
     Dosage: 40 MG AT BEDTIME PO
     Route: 048
     Dates: start: 20210505, end: 20250408

REACTIONS (3)
  - Acute kidney injury [None]
  - Failure to thrive [None]
  - Rhabdomyolysis [None]

NARRATIVE: CASE EVENT DATE: 20250408
